FAERS Safety Report 17980120 (Version 1)
Quarter: 2020Q3

REPORT INFORMATION
  Report Type: Spontaneous
  Country: PL (occurrence: PL)
  Receive Date: 20200703
  Receipt Date: 20200703
  Transmission Date: 20201103
  Serious: Yes (Other)
  Sender: FDA-Public Use
  Company Number: PL-OTSUKA-2020_015814

PATIENT
  Age: 41 Year
  Sex: Female

DRUGS (4)
  1. CYCLOPHOSPHAMIDE. [Suspect]
     Active Substance: CYCLOPHOSPHAMIDE
     Indication: ACUTE MYELOID LEUKAEMIA REFRACTORY
     Dosage: 50 MG/KG DAYS ?3, ?2
     Route: 065
  2. CYCLOPHOSPHAMIDE. [Suspect]
     Active Substance: CYCLOPHOSPHAMIDE
     Indication: ALLOGENIC STEM CELL TRANSPLANTATION
  3. BUSULFAN. [Suspect]
     Active Substance: BUSULFAN
     Indication: ALLOGENIC STEM CELL TRANSPLANTATION
  4. BUSULFAN. [Suspect]
     Active Substance: BUSULFAN
     Indication: ACUTE MYELOID LEUKAEMIA REFRACTORY
     Dosage: 3.2 MG, QD (DAYS ?7, ?6, ?5, ?4)
     Route: 042

REACTIONS (4)
  - Cytomegalovirus infection [Unknown]
  - Hypoacusis [Unknown]
  - Cystitis haemorrhagic [Unknown]
  - Otitis media [Unknown]
